FAERS Safety Report 14327070 (Version 1)
Quarter: 2017Q4

REPORT INFORMATION
  Report Type: Spontaneous
  Country: CZ (occurrence: CZ)
  Receive Date: 20171227
  Receipt Date: 20171227
  Transmission Date: 20180321
  Serious: Yes (Other)
  Sender: FDA-Public Use
  Company Number: CZ-UCBSA-2017052217

PATIENT
  Age: 4 Year
  Sex: Male
  Weight: 18 kg

DRUGS (3)
  1. TOPAMAX [Suspect]
     Active Substance: TOPIRAMATE
     Indication: EPILEPSY
     Dosage: 12.5 MG, 2X/DAY (BID)
     Dates: start: 20170617
  2. DEPAKINE [Suspect]
     Active Substance: VALPROATE SODIUM
     Indication: EPILEPSY
     Dosage: 300 MG/L, 2X/DAY (BID)
  3. KEPPRA [Suspect]
     Active Substance: LEVETIRACETAM
     Indication: EPILEPSY
     Dosage: 300 MG/L, 2X/DAY (BID)

REACTIONS (3)
  - Attention deficit/hyperactivity disorder [Unknown]
  - Psychomotor hyperactivity [Unknown]
  - Haematoma [Unknown]
